FAERS Safety Report 6479811-7 (Version None)
Quarter: 2009Q4

REPORT INFORMATION
  Report Type: 
  Country: None (occurrence: None)
  Receive Date: 20091208
  Receipt Date: 20091130
  Transmission Date: 20100525
  Serious: Yes (Death, Hospitalization)
  Sender: FDA-Public Use
  Company Number: US-ROCHE-634645

PATIENT
  Sex: Male
  Weight: 97.5 kg

DRUGS (8)
  1. CAPECITABINE [Suspect]
     Indication: COLORECTAL CANCER
     Route: 048
     Dates: start: 20090430
  2. CAPECITABINE [Suspect]
     Route: 048
     Dates: start: 20090511, end: 20090630
  3. CAPECITABINE [Suspect]
     Dosage: 1500 MG AM/1000 MG PM
     Route: 048
     Dates: end: 20091130
  4. VYTORIN [Concomitant]
  5. METOPROLOL [Concomitant]
  6. TRIZOL [Concomitant]
  7. INSULIN [Concomitant]
  8. NEXIUM [Concomitant]

REACTIONS (6)
  - ASTHENIA [None]
  - DEATH [None]
  - DEHYDRATION [None]
  - DIARRHOEA [None]
  - HAEMOGLOBIN DECREASED [None]
  - STOMATITIS [None]
